FAERS Safety Report 13104802 (Version 2)
Quarter: 2017Q1

REPORT INFORMATION
  Report Type: Spontaneous
  Country: US (occurrence: US)
  Receive Date: 20170111
  Receipt Date: 20170301
  Transmission Date: 20170428
  Serious: No
  Sender: FDA-Public Use
  Company Number: US-PFIZER INC-2017007752

PATIENT
  Age: 55 Year
  Sex: Male

DRUGS (1)
  1. IBUPROFEN. [Suspect]
     Active Substance: IBUPROFEN
     Indication: DISCOMFORT
     Dosage: UNK, AS NEEDED (AS DIRECTED ON BOTTLE)
     Route: 048

REACTIONS (3)
  - Pruritus [Recovered/Resolved]
  - Drug hypersensitivity [Unknown]
  - Diarrhoea [Unknown]
